FAERS Safety Report 18439688 (Version 1)
Quarter: 2020Q4

REPORT INFORMATION
  Report Type: Spontaneous
  Country: CN (occurrence: CN)
  Receive Date: 20201029
  Receipt Date: 20201029
  Transmission Date: 20210114
  Serious: Yes (Life-Threatening)
  Sender: FDA-Public Use
  Company Number: CN-ASTRAZENECA-2020SF40465

PATIENT
  Age: 64 Year
  Sex: Female

DRUGS (3)
  1. ACETYLCYSTEINE. [Suspect]
     Active Substance: ACETYLCYSTEINE
     Route: 055
     Dates: start: 20201015, end: 20201016
  2. BUDESONIDE. [Suspect]
     Active Substance: BUDESONIDE
     Indication: PYREXIA
     Route: 055
     Dates: start: 20201015, end: 20201016
  3. TERBUTALINE SULPHATE [Suspect]
     Active Substance: TERBUTALINE SULFATE
     Route: 055
     Dates: start: 20201015, end: 20201016

REACTIONS (1)
  - Dyspnoea [Recovering/Resolving]

NARRATIVE: CASE EVENT DATE: 20201016
